FAERS Safety Report 10072206 (Version 1)
Quarter: 2014Q2

REPORT INFORMATION
  Report Type: Spontaneous
  Country: US (occurrence: None)
  Receive Date: 20140410
  Receipt Date: 20140410
  Transmission Date: 20141212
  Serious: Yes (Disabling)
  Sender: FDA-Public Use
  Company Number: None

PATIENT
  Age: 25 Year
  Sex: Female
  Weight: 52.16 kg

DRUGS (1)
  1. ZYRTEC [Suspect]
     Indication: BLOOD IMMUNOGLOBULIN G ABNORMAL
     Dosage: 1 PILL
     Route: 048
     Dates: start: 20130901, end: 20140404

REACTIONS (11)
  - Hypersensitivity [None]
  - Hangover [None]
  - Nausea [None]
  - Malaise [None]
  - Pruritus [None]
  - Disturbance in attention [None]
  - Impaired work ability [None]
  - Dry skin [None]
  - Drug withdrawal syndrome [None]
  - Product substitution issue [None]
  - Product quality issue [None]
